FAERS Safety Report 7296531-X (Version None)
Quarter: 2011Q1

REPORT INFORMATION
  Report Type: 
  Country: None (occurrence: None)
  Receive Date: 20110216
  Receipt Date: 20110204
  Transmission Date: 20110831
  Serious: Yes (Other)
  Sender: FDA-Public Use
  Company Number: PHFR2011GB00534

PATIENT
  Sex: Male
  Weight: 90 kg

DRUGS (7)
  1. CLOZARIL [Suspect]
     Dosage: UNK MG, UNK
     Route: 048
     Dates: start: 20101206
  2. VENLAFAXINE [Concomitant]
     Indication: DEPRESSION
     Dosage: 180 MG, BID
     Route: 048
     Dates: start: 20101210
  3. CLOZARIL [Suspect]
     Dosage: 100 MG, QD
     Route: 048
     Dates: start: 20101218
  4. VENLAFAXINE [Concomitant]
     Dosage: 75 MG, BID
     Route: 048
     Dates: start: 20110121
  5. CLOZARIL [Suspect]
     Dosage: 75 MG MANE, 100 MG NOCTE
     Route: 048
     Dates: start: 20110107
  6. SENNA [Concomitant]
     Indication: CONSTIPATION
     Dosage: 1 TABLET NOCTE
     Dates: start: 20101219
  7. CLOZARIL [Suspect]
     Dosage: 100 MG, BID
     Route: 048

REACTIONS (4)
  - WHITE BLOOD CELL COUNT INCREASED [None]
  - TONSILLITIS [None]
  - HEART RATE INCREASED [None]
  - NEUTROPHIL COUNT INCREASED [None]
